FAERS Safety Report 4471831-7 (Version None)
Quarter: 2004Q4

REPORT INFORMATION
  Report Type: 
  Country: None (occurrence: None)
  Receive Date: 20041007
  Receipt Date: 20040930
  Transmission Date: 20050328
  Serious: Yes (Disabling, Other)
  Sender: FDA-Public Use
  Company Number: 04-09-1380

PATIENT
  Age: 29 Year
  Sex: Female

DRUGS (4)
  1. FLUCONAZOLE [Suspect]
     Indication: BODY TINEA
     Dosage: 150MG/DIE UNKNOWN
  2. CARBAMAZEPINE [Suspect]
     Indication: EPILEPSY
     Dosage: 1600MG/DIE
  3. LAMOTRIGINE [Concomitant]
  4. BARBEXACLONE [Concomitant]

REACTIONS (15)
  - ANTICONVULSANT TOXICITY [None]
  - BODY TINEA [None]
  - CEREBELLAR SYNDROME [None]
  - DIPLOPIA [None]
  - DIZZINESS [None]
  - EYE MOVEMENT DISORDER [None]
  - GAIT DISTURBANCE [None]
  - GAMMA-GLUTAMYLTRANSFERASE INCREASED [None]
  - MICROSPORUM INFECTION [None]
  - NAUSEA [None]
  - NYSTAGMUS [None]
  - OSCILLOPSIA [None]
  - VISION BLURRED [None]
  - VOMITING [None]
  - WHITE BLOOD CELL COUNT DECREASED [None]
